FAERS Safety Report 5190355-5 (Version None)
Quarter: 2006Q4

REPORT INFORMATION
  Report Type: 
  Country: None (occurrence: None)
  Receive Date: 20061222
  Receipt Date: 20060623
  Transmission Date: 20070319
  Serious: No
  Sender: FDA-Public Use
  Company Number: US-AMGEN-KDL184113

PATIENT
  Sex: Male

DRUGS (17)
  1. ARANESP [Suspect]
     Indication: RENAL FAILURE CHRONIC
     Dates: start: 20050901
  2. FERROUS SULFATE TAB [Concomitant]
  3. MYCOPHENOLATE MOFETIL [Concomitant]
  4. CYCLOSPORINE [Concomitant]
  5. PREDNISONE TAB [Concomitant]
  6. CALCITRIOL [Concomitant]
  7. NIFEDIPINE [Concomitant]
  8. LISINOPRIL [Concomitant]
  9. FUROSEMIDE INTENSOL [Concomitant]
  10. FLOMAX [Concomitant]
  11. ZOCOR [Concomitant]
  12. ALLOPURINOL [Concomitant]
  13. PROSCAR [Concomitant]
  14. OMEPRAZOLE [Concomitant]
  15. CALCIUM CARBONATE [Concomitant]
  16. FLUTICASONE PROPIONATE [Concomitant]
     Route: 055
  17. SODIUM BICARBONATE [Concomitant]

REACTIONS (4)
  - CHRONIC ALLOGRAFT NEPHROPATHY [None]
  - DRUG INEFFECTIVE [None]
  - FATIGUE [None]
  - PYREXIA [None]
